FAERS Safety Report 7767407-6 (Version None)
Quarter: 2011Q3

REPORT INFORMATION
  Report Type: 
  Country: None (occurrence: None)
  Receive Date: 20110922
  Receipt Date: 20101102
  Transmission Date: 20111222
  Serious: Yes (Hospitalization)
  Sender: FDA-Public Use
  Company Number: US-ASTRAZENECA-2010SE52036

PATIENT
  Sex: Male

DRUGS (3)
  1. SEROQUEL XR [Suspect]
     Indication: BIPOLAR DISORDER
     Route: 048
     Dates: start: 20100101, end: 20101001
  2. SEROQUEL XR [Suspect]
     Indication: SUICIDAL BEHAVIOUR
     Route: 048
     Dates: start: 20100101, end: 20101001
  3. SEROQUEL XR [Suspect]
     Indication: SUBSTANCE ABUSE
     Route: 048
     Dates: start: 20100101, end: 20101001

REACTIONS (1)
  - BLOOD GLUCOSE INCREASED [None]
